FAERS Safety Report 7690339-9 (Version None)
Quarter: 2011Q3

REPORT INFORMATION
  Report Type: 
  Country: None (occurrence: None)
  Receive Date: 20110818
  Receipt Date: 20110809
  Transmission Date: 20111222
  Serious: Yes (Death, Hospitalization, Other)
  Sender: FDA-Public Use
  Company Number: IT-TEVA-296669ISR

PATIENT
  Sex: Female

DRUGS (3)
  1. OXYCODONE HCL [Concomitant]
     Dates: start: 20101205, end: 20101228
  2. NEUPOGEN [Concomitant]
  3. DACARBAZINE [Suspect]
     Indication: METASTATIC MALIGNANT MELANOMA
     Route: 042
     Dates: start: 20101213

REACTIONS (5)
  - SHOCK [None]
  - FEBRILE NEUTROPENIA [None]
  - ANAEMIA [None]
  - BONE MARROW FAILURE [None]
  - THROMBOCYTOPENIA [None]
